FAERS Safety Report 24193345 (Version 1)
Quarter: 2024Q3

REPORT INFORMATION
  Report Type: Spontaneous
  Country: US (occurrence: US)
  Receive Date: 20240809
  Receipt Date: 20240809
  Transmission Date: 20241017
  Serious: No
  Sender: PERRIGO
  Company Number: US-PERRIGO-23US012703

PATIENT
  Age: 65 Year
  Sex: Female
  Weight: 81.633 kg

DRUGS (14)
  1. NICOTINE POLACRILEX [Suspect]
     Active Substance: NICOTINE
     Indication: Smoking cessation therapy
     Dosage: 4 MG TO 8 MG, PRN
     Route: 002
     Dates: start: 20230905
  2. NICOTINE POLACRILEX [Suspect]
     Active Substance: NICOTINE
     Dosage: 12 MG, SINGLE
     Route: 002
     Dates: start: 202309, end: 202309
  3. NICOTINE POLACRILEX [Suspect]
     Active Substance: NICOTINE
     Dosage: 4 MG, SINGLE
     Route: 002
  4. GABAPENTIN [Concomitant]
     Active Substance: GABAPENTIN
     Indication: Neuropathy peripheral
     Dosage: UNK
     Route: 065
     Dates: start: 2021
  5. TRULANCE [Concomitant]
     Active Substance: PLECANATIDE
     Indication: Constipation
     Dosage: UNK
     Route: 065
     Dates: start: 2021
  6. TIZANIDINE [Concomitant]
     Active Substance: TIZANIDINE
     Indication: Muscle spasms
     Dosage: 4 MG, UNKNOWN
     Route: 065
  7. TROSPIUM CHLORIDE [Concomitant]
     Active Substance: TROSPIUM CHLORIDE
     Indication: Micturition urgency
     Dosage: 60 MG, UNKNOWN
     Route: 065
     Dates: start: 2021
  8. METOPROLOL TARTRATE [Concomitant]
     Active Substance: METOPROLOL TARTRATE
     Indication: Hypertension
     Dosage: 25 MG, UNKNOWN
     Route: 065
  9. LOSARTAN [Concomitant]
     Active Substance: LOSARTAN\LOSARTAN POTASSIUM
     Indication: Hypertension
     Dosage: UNK
     Route: 065
  10. LEVOTHYROXINE [Concomitant]
     Active Substance: LEVOTHYROXINE\LEVOTHYROXINE SODIUM
     Indication: Thyroid disorder
     Dosage: .05 MG, UNKNOWN
     Route: 065
  11. OMEPRAZOLE [Concomitant]
     Active Substance: OMEPRAZOLE
     Indication: Dyspepsia
     Dosage: 10 MG, UNKNOWN
     Route: 065
  12. TYLENOL PM [Concomitant]
     Active Substance: ACETAMINOPHEN\DIPHENHYDRAMINE
     Indication: Insomnia
     Dosage: UNK
     Route: 065
     Dates: start: 2022
  13. LOVASTATIN [Concomitant]
     Active Substance: LOVASTATIN
     Indication: Blood cholesterol increased
     Dosage: 40 MG, UNKNOWN
     Route: 065
     Dates: start: 1993
  14. FLUOXETINE [Concomitant]
     Active Substance: FLUOXETINE HYDROCHLORIDE
     Indication: Stress
     Dosage: UNK
     Route: 065
     Dates: start: 202309

REACTIONS (3)
  - Dental caries [Not Recovered/Not Resolved]
  - Incorrect dose administered [Unknown]
  - Wrong technique in product usage process [Unknown]

NARRATIVE: CASE EVENT DATE: 20230901
